FAERS Safety Report 11341249 (Version 1)
Quarter: 2015Q3

REPORT INFORMATION
  Report Type: Spontaneous
  Country: US (occurrence: None)
  Receive Date: 20150803
  Receipt Date: 20150803
  Transmission Date: 20151125
  Serious: Yes (Disabling)
  Sender: FDA-Public Use
  Company Number: None

PATIENT
  Age: 28 Year
  Sex: Female

DRUGS (15)
  1. CPAP [Concomitant]
     Active Substance: DEVICE
  2. YASMIN [Suspect]
     Active Substance: DROSPIRENONE\ETHINYL ESTRADIOL
     Indication: PREMENSTRUAL DYSPHORIC DISORDER
     Dates: start: 20060131, end: 20080101
  3. LORAZEPAM. [Concomitant]
     Active Substance: LORAZEPAM
  4. YASMIN [Suspect]
     Active Substance: DROSPIRENONE\ETHINYL ESTRADIOL
     Indication: MENORRHAGIA
     Dates: start: 20060131, end: 20080101
  5. PLAQUENIL [Concomitant]
     Active Substance: HYDROXYCHLOROQUINE SULFATE
  6. CALCIUM/MAGNESIUM [Concomitant]
  7. OCELLA [Suspect]
     Active Substance: DROSPIRENONE\ETHINYL ESTRADIOL
     Indication: MENORRHAGIA
     Dates: start: 20080101, end: 20110331
  8. LYRICA [Concomitant]
     Active Substance: PREGABALIN
  9. VESICARE [Concomitant]
     Active Substance: SOLIFENACIN SUCCINATE
  10. CYCLOBENZAPRINE [Concomitant]
     Active Substance: CYCLOBENZAPRINE
  11. IBUPROFEN. [Concomitant]
     Active Substance: IBUPROFEN
  12. RESTASIS [Concomitant]
     Active Substance: CYCLOSPORINE
  13. OMEPRAZOLE. [Concomitant]
     Active Substance: OMEPRAZOLE
  14. OCELLA [Suspect]
     Active Substance: DROSPIRENONE\ETHINYL ESTRADIOL
     Indication: PREMENSTRUAL DYSPHORIC DISORDER
     Dates: start: 20080101, end: 20110331
  15. MECLIZINE [Concomitant]
     Active Substance: MECLIZINE\MECLIZINE HYDROCHLORIDE

REACTIONS (26)
  - Drug ineffective [None]
  - Fatigue [None]
  - Myalgia [None]
  - Iritis [None]
  - Dry skin [None]
  - Migraine [None]
  - Alopecia [None]
  - Asthenia [None]
  - Loss of employment [None]
  - Neuropathy peripheral [None]
  - Bladder disorder [None]
  - Skin ulcer [None]
  - Weight increased [None]
  - Exostosis [None]
  - Fibromyalgia [None]
  - Product substitution issue [None]
  - Skin exfoliation [None]
  - Amenorrhoea [None]
  - Arthralgia [None]
  - Vertigo positional [None]
  - Arthritis [None]
  - Systemic lupus erythematosus [None]
  - White blood cell count increased [None]
  - Spondylolisthesis [None]
  - Sleep apnoea syndrome [None]
  - Sjogren^s syndrome [None]

NARRATIVE: CASE EVENT DATE: 20140306
